FAERS Safety Report 19534111 (Version 2)
Quarter: 2021Q3

REPORT INFORMATION
  Report Type: Other
  Country: US (occurrence: US)
  Receive Date: 20210714
  Receipt Date: 20210824
  Transmission Date: 20211014
  Serious: Yes (Hospitalization)
  Sender: FDA-Public Use
  Company Number: US-ROCHE-2865181

PATIENT
  Sex: Male
  Weight: 11.3 kg

DRUGS (8)
  1. ZINC. [Concomitant]
     Active Substance: ZINC
  2. ZOFRAN [Concomitant]
     Active Substance: ONDANSETRON HYDROCHLORIDE
  3. EVRYSDI [Suspect]
     Active Substance: RISDIPLAM
     Indication: SPINAL MUSCULAR ATROPHY
     Dosage: 60 MG/80 ML
     Route: 048
  4. CAT^S CLAW [Concomitant]
     Active Substance: CAT^S CLAW
  5. VITAMIN C [Concomitant]
     Active Substance: ASCORBIC ACID
  6. LEVALBUTEROL. [Concomitant]
     Active Substance: LEVALBUTEROL
  7. VITAMIN D3 [Concomitant]
     Active Substance: CHOLECALCIFEROL
  8. ACETYLCYSTEINE. [Concomitant]
     Active Substance: ACETYLCYSTEINE

REACTIONS (3)
  - Facial bones fracture [Unknown]
  - Skull fracture [Unknown]
  - Fall [Unknown]
